FAERS Safety Report 21556944 (Version 1)
Quarter: 2022Q4

REPORT INFORMATION
  Report Type: Spontaneous
  Country: NL (occurrence: NL)
  Receive Date: 20221104
  Receipt Date: 20221104
  Transmission Date: 20230112
  Serious: Yes (Other)
  Sender: FDA-Public Use
  Company Number: NL-SCALL-2022-NL-000060

PATIENT
  Sex: Male
  Weight: 81 kg

DRUGS (1)
  1. DUTASTERIDE\TAMSULOSIN HYDROCHLORIDE [Suspect]
     Active Substance: DUTASTERIDE\TAMSULOSIN HYDROCHLORIDE
     Indication: Prostatic disorder
     Dosage: 1 DF, QD, 1 X PER DAY 1 TABLET
     Route: 065
     Dates: start: 20180910, end: 20220822

REACTIONS (1)
  - Renal impairment [Recovering/Resolving]
